FAERS Safety Report 9585678 (Version 2)
Quarter: 2013Q4

REPORT INFORMATION
  Report Type: Spontaneous
  Country: DE (occurrence: DE)
  Receive Date: 20131003
  Receipt Date: 20131030
  Transmission Date: 20140711
  Serious: Yes (Other)
  Sender: FDA-Public Use
  Company Number: DE-ROCHE-1284124

PATIENT
  Age: 39 Year
  Sex: Female
  Weight: 58 kg

DRUGS (3)
  1. RITUXIMAB [Suspect]
     Indication: RHEUMATOID ARTHRITIS
     Route: 042
     Dates: start: 20130228, end: 20130228
  2. RITUXIMAB [Suspect]
     Route: 042
     Dates: start: 20130314, end: 20130314
  3. RITUXIMAB [Suspect]
     Route: 042
     Dates: start: 20130910, end: 20130910

REACTIONS (7)
  - Chills [Recovered/Resolved]
  - Throat tightness [Recovered/Resolved]
  - Nausea [Recovered/Resolved]
  - Headache [Recovered/Resolved]
  - Dyspnoea [Recovered/Resolved]
  - Dizziness [Recovered/Resolved]
  - Cardiovascular disorder [Recovered/Resolved]
